FAERS Safety Report 20332600 (Version 1)
Quarter: 2022Q1

REPORT INFORMATION
  Report Type: Spontaneous
  Country: US (occurrence: US)
  Receive Date: 20220113
  Receipt Date: 20220113
  Transmission Date: 20220423
  Serious: No
  Sender: FDA-Public Use
  Company Number: US-GW PHARMA-202201USGW00098

PATIENT

DRUGS (1)
  1. EPIDIOLEX [Suspect]
     Active Substance: CANNABIDIOL
     Indication: Seizure
     Dosage: 250 MILLIGRAM, BID (IF MORE SEIZURES, INCREASE TO 300MG BID, IF MORE SEIZURES INCREASE TO 400MG BID,
     Route: 048
     Dates: start: 202105

REACTIONS (1)
  - Seizure [Unknown]
